FAERS Safety Report 23766373 (Version 2)
Quarter: 2024Q3

REPORT INFORMATION
  Report Type: Spontaneous
  Country: DE (occurrence: DE)
  Receive Date: 20240422
  Receipt Date: 20240917
  Transmission Date: 20241016
  Serious: Yes (Other)
  Sender: SANDOZ
  Company Number: DE-002147023-NVSC2021DE174064

PATIENT
  Sex: Female
  Weight: 78 kg

DRUGS (8)
  1. FULVESTRANT [Suspect]
     Active Substance: FULVESTRANT
     Indication: Breast cancer metastatic
     Dosage: 500 MG (DAILY DOSE), Q4W
     Route: 030
     Dates: start: 20201130
  2. KISQALI [Suspect]
     Active Substance: RIBOCICLIB
     Dosage: 400 MG, QD400 MG, QD (DAILY DOSE) (21 DAYS INTAKE THEN 7 DAYS PAUSE)
     Route: 048
     Dates: start: 20210824
  3. KISQALI [Suspect]
     Active Substance: RIBOCICLIB
     Indication: Breast cancer metastatic
     Dosage: 600 MG, QD (DAILY DOSE) (21 DAYS INTAKE THEN 7 DAYS PAUSE)
     Route: 048
     Dates: start: 20201201, end: 20210702
  4. KISQALI [Suspect]
     Active Substance: RIBOCICLIB
     Dosage: 600 MG600 MG, QD (DAILY DOSE) (21 DAYS INTAKE THEN 7 DAYS PAUSE)
     Route: 048
     Dates: start: 20210719, end: 20210815
  5. RIBOCICLIB [Suspect]
     Active Substance: RIBOCICLIB
     Dosage: 400 MG, QD (DAILY DOSE) (21 DAYS INTAKE THEN 7 DAYS PAUSE)
     Route: 048
     Dates: start: 20210824, end: 20240311
  6. RIBOCICLIB [Suspect]
     Active Substance: RIBOCICLIB
     Dosage: 400 MG, QD (DAILY DOSE) (21 DAYS INTAKE THEN 7 DAYS PAUSE)
     Route: 048
     Dates: start: 20240326, end: 20240415
  7. RIBOCICLIB [Suspect]
     Active Substance: RIBOCICLIB
     Indication: Breast cancer metastatic
     Dosage: 600 MG, QD (DAILY DOSE) (21 DAYS INTAKE THEN 7 DAYS PAUSE)
     Route: 048
     Dates: start: 20210719, end: 20210815
  8. RIBOCICLIB [Suspect]
     Active Substance: RIBOCICLIB
     Dosage: 600 MG, QD (DAILY DOSE) (21 DAYS INTAKE THEN 7 DAYS PAUSE)
     Route: 048
     Dates: start: 20201201, end: 20210702

REACTIONS (1)
  - Neutrophil count decreased [Not Recovered/Not Resolved]

NARRATIVE: CASE EVENT DATE: 20210712
